FAERS Safety Report 5927448-8 (Version None)
Quarter: 2008Q4

REPORT INFORMATION
  Report Type: 
  Country: None (occurrence: None)
  Receive Date: 20081022
  Receipt Date: 20081022
  Transmission Date: 20090506
  Serious: No
  Sender: FDA-Public Use
  Company Number: None

PATIENT
  Age: 69 Year
  Sex: Female
  Weight: 64.8644 kg

DRUGS (2)
  1. HYOSCYAMINE, 0.125MG. ACTAVIS [Suspect]
     Indication: IRRITABLE BOWEL SYNDROME
     Dosage: 0.125MG 1 EVERY 4 HRS. SUB-LING
     Route: 060
     Dates: start: 20080512, end: 20080514
  2. HYOSCYAMINE, 0.125MG. ACTAVIS [Suspect]
     Indication: URINARY TRACT DISORDER
     Dosage: 0.125MG 1 EVERY 4 HRS. SUB-LING
     Route: 060
     Dates: start: 20080512, end: 20080514

REACTIONS (2)
  - DRUG INEFFECTIVE [None]
  - PRODUCT QUALITY ISSUE [None]
